FAERS Safety Report 25591875 (Version 1)
Quarter: 2025Q3

REPORT INFORMATION
  Report Type: Spontaneous
  Country: US (occurrence: None)
  Receive Date: 20250722
  Receipt Date: 20250722
  Transmission Date: 20251020
  Serious: Yes (Death)
  Sender: FDA-CTU
  Company Number: None

PATIENT
  Age: 81 Year
  Sex: Female

DRUGS (1)
  1. DASATINIB [Suspect]
     Active Substance: DASATINIB
     Dosage: FREQUENCY : TWICE A DAY;?

REACTIONS (3)
  - Disease complication [None]
  - Chronic myeloid leukaemia [None]
  - Therapy non-responder [None]
